FAERS Safety Report 7424088-9 (Version None)
Quarter: 2011Q2

REPORT INFORMATION
  Report Type: 
  Country: None (occurrence: None)
  Receive Date: 20110419
  Receipt Date: 20110411
  Transmission Date: 20111010
  Serious: Yes (Other)
  Sender: FDA-Public Use
  Company Number: PHHY2011TR29661

PATIENT
  Age: 43 Year
  Sex: Female

DRUGS (6)
  1. TAMOXIFEN [Suspect]
     Indication: CHEMOTHERAPY
  2. EPIRUBICIN [Suspect]
     Indication: CHEMOTHERAPY
  3. RADIOTHERAPY [Suspect]
  4. FLUOROURACIL [Suspect]
     Indication: CHEMOTHERAPY
  5. PACLITAXEL [Suspect]
     Indication: CHEMOTHERAPY
     Dosage: UNK UKN, QW
  6. CYCLOPHOSPHAMIDE [Suspect]
     Indication: CHEMOTHERAPY

REACTIONS (4)
  - CYTOGENETIC ABNORMALITY [None]
  - GINGIVAL BLEEDING [None]
  - ACUTE PROMYELOCYTIC LEUKAEMIA [None]
  - THROMBOCYTOPENIA [None]
